FAERS Safety Report 10042011 (Version 2)
Quarter: 2014Q1

REPORT INFORMATION
  Report Type: Spontaneous
  Country: HR (occurrence: HR)
  Receive Date: 20140327
  Receipt Date: 20140327
  Transmission Date: 20141002
  Serious: Yes (Hospitalization)
  Sender: FDA-Public Use
  Company Number: HR-BRISTOL-MYERS SQUIBB COMPANY-20385357

PATIENT
  Sex: Male
  Weight: 3 kg

DRUGS (5)
  1. BYETTA [Suspect]
     Route: 064
     Dates: start: 2012, end: 20130807
  2. AMARYL [Suspect]
     Route: 064
     Dates: start: 2010, end: 20130521
  3. ATORVASTATIN [Concomitant]
     Route: 064
     Dates: start: 2010, end: 20130807
  4. FENOFIBRATE [Concomitant]
     Route: 064
     Dates: start: 2012, end: 20130807
  5. VOLTAREN RAPID [Concomitant]
     Route: 064
     Dates: start: 2004, end: 20130807

REACTIONS (2)
  - Hyperbilirubinaemia [Unknown]
  - Foetal exposure during pregnancy [Unknown]
